FAERS Safety Report 11110449 (Version 1)
Quarter: 2015Q2

REPORT INFORMATION
  Report Type: Spontaneous
  Country: GB (occurrence: GB)
  Receive Date: 20150513
  Receipt Date: 20150513
  Transmission Date: 20150821
  Serious: Yes (Disabling)
  Sender: FDA-Public Use
  Company Number: GB-BANPHARM-20153860

PATIENT
  Age: 81 Year
  Sex: Female
  Weight: 87 kg

DRUGS (11)
  1. IBUPROFEN UNKNOWN PRODUCT [Suspect]
     Active Substance: IBUPROFEN
     Dates: start: 20120720
  2. WHITE SOFT PARAFFIN [Concomitant]
     Dates: start: 20090528
  3. ASPIRIN. [Concomitant]
     Active Substance: ASPIRIN
     Dosage: 1 DF, QD,
     Dates: start: 20140811
  4. SOLIFENACIN [Concomitant]
     Active Substance: SOLIFENACIN
     Dosage: 1 DF, QD,
     Dates: start: 20131121
  5. TRAMADOL [Concomitant]
     Active Substance: TRAMADOL
     Dosage: PRN,
     Dates: start: 20140307
  6. ESTRIOL [Concomitant]
     Active Substance: ESTRIOL
     Dates: start: 20150409
  7. LANSOPRAZOLE. [Concomitant]
     Active Substance: LANSOPRAZOLE
     Dosage: 1 DF, QD,
     Dates: start: 20140811
  8. HYPROMELLOSE [Concomitant]
     Active Substance: HYPROMELLOSES
     Dosage: 1 DF, QID,
     Dates: start: 20150223
  9. PARACETAMOL [Concomitant]
     Active Substance: ACETAMINOPHEN
     Dosage: 2 DF, QID,
     Route: 048
     Dates: start: 20110704
  10. BENDROFLUMETHIAZIDE [Concomitant]
     Active Substance: BENDROFLUMETHIAZIDE
     Dosage: 1 DF, QD,
     Route: 048
     Dates: start: 20120309
  11. SIMVASTATIN. [Concomitant]
     Active Substance: SIMVASTATIN
     Dosage: 1 DF, QD,
     Dates: start: 20121012

REACTIONS (3)
  - Rash [Recovered/Resolved]
  - Oedema peripheral [Recovered/Resolved]
  - Gingivitis [Recovered/Resolved]

NARRATIVE: CASE EVENT DATE: 20150421
